FAERS Safety Report 17265567 (Version 5)
Quarter: 2020Q4

REPORT INFORMATION
  Report Type: Spontaneous
  Country: US (occurrence: US)
  Receive Date: 20200114
  Receipt Date: 20201209
  Transmission Date: 20210113
  Serious: Yes (Hospitalization, Other)
  Sender: FDA-Public Use
  Company Number: US-SA-2020SA008647

PATIENT

DRUGS (10)
  1. FLONASE [MOMETASONE FUROATE] [Concomitant]
     Active Substance: MOMETASONE FUROATE
     Indication: HYPERSENSITIVITY
  2. TURMERIC CURCUMIN [CURCUMA LONGA] [Concomitant]
     Indication: HORMONE THERAPY
  3. WELLBUTRIN [Concomitant]
     Active Substance: BUPROPION HYDROCHLORIDE
     Indication: ANXIETY
     Dosage: UNK
  4. WELLBUTRIN [Concomitant]
     Active Substance: BUPROPION HYDROCHLORIDE
     Indication: DEPRESSION
  5. EVENING PRIMROSE [Concomitant]
     Indication: HORMONE THERAPY
  6. BIOTIN [Concomitant]
     Active Substance: BIOTIN
  7. ANASTROZOLE. [Concomitant]
     Active Substance: ANASTROZOLE
     Indication: BREAST CANCER
  8. NEURONTIN [Concomitant]
     Active Substance: GABAPENTIN
     Indication: HOT FLUSH
  9. DUPIXENT [Suspect]
     Active Substance: DUPILUMAB
     Indication: DERMATITIS ATOPIC
     Dosage: 300 MG, QOW
     Route: 058
     Dates: start: 2020
  10. DUPIXENT [Suspect]
     Active Substance: DUPILUMAB
     Indication: ECZEMA
     Dosage: 300 MG, QOW
     Route: 058
     Dates: start: 20190925, end: 20200322

REACTIONS (6)
  - Alopecia [Unknown]
  - Dermatitis atopic [Not Recovered/Not Resolved]
  - Eye disorder [Unknown]
  - Emphysema [Unknown]
  - Pneumonia [Unknown]
  - Drug ineffective [Unknown]

NARRATIVE: CASE EVENT DATE: 2019
